FAERS Safety Report 25032787 (Version 1)
Quarter: 2025Q1

REPORT INFORMATION
  Report Type: Spontaneous
  Country: US (occurrence: None)
  Receive Date: 20250303
  Receipt Date: 20250303
  Transmission Date: 20250409
  Serious: Yes (Death)
  Sender: FDA-CTU
  Company Number: None

PATIENT
  Age: 81 Year
  Sex: Male
  Weight: 80.6 kg

DRUGS (10)
  1. TAGRISSO [Suspect]
     Active Substance: OSIMERTINIB
     Indication: Lung neoplasm malignant
     Dosage: 80 MG DAILY ORAL
     Route: 048
     Dates: start: 20241223, end: 20250226
  2. TAMSULOSIN [Concomitant]
     Active Substance: TAMSULOSIN
  3. ADVAIR HFA 115/21MCG [Concomitant]
  4. ALBUTEROL SULFATE [Concomitant]
     Active Substance: ALBUTEROL SULFATE
  5. DUTASTERIDE [Concomitant]
     Active Substance: DUTASTERIDE
  6. FUROSEMIDE [Concomitant]
     Active Substance: FUROSEMIDE
  7. PRESERVISION AERDS [Concomitant]
  8. SIMVASTATIN [Concomitant]
     Active Substance: SIMVASTATIN
  9. VALSARTAN [Concomitant]
     Active Substance: VALSARTAN
  10. VITAMIN D 2000 U [Concomitant]

REACTIONS (1)
  - Death [None]

NARRATIVE: CASE EVENT DATE: 20250226
